FAERS Safety Report 4370565-7 (Version None)
Quarter: 2004Q2

REPORT INFORMATION
  Report Type: 
  Country: None (occurrence: None)
  Receive Date: 20040603
  Receipt Date: 20040213
  Transmission Date: 20050107
  Serious: Yes (Other)
  Sender: FDA-Public Use
  Company Number: JP-MERCK-0402USA01196

PATIENT
  Age: 77 Year
  Sex: Female

DRUGS (3)
  1. COUGH, COLD, AND FLU THERAPIES (UNSPECIFIED) [Suspect]
     Indication: NASOPHARYNGITIS
     Route: 048
     Dates: start: 20040106
  2. COZAAR [Suspect]
     Indication: HYPERTENSION
     Route: 048
     Dates: start: 20031118, end: 20031214
  3. COZAAR [Suspect]
     Route: 048
     Dates: start: 20031215, end: 20040106

REACTIONS (1)
  - ANAPHYLACTIC SHOCK [None]
